FAERS Safety Report 4277624-8 (Version None)
Quarter: 2004Q1

REPORT INFORMATION
  Report Type: 
  Country: None (occurrence: None)
  Receive Date: 20040121
  Receipt Date: 20031209
  Transmission Date: 20041129
  Serious: No
  Sender: FDA-Public Use
  Company Number: 2003-106505-NL

PATIENT
  Age: 58 Year
  Sex: Female

DRUGS (5)
  1. REMERON [Suspect]
     Indication: DEPRESSION
     Dosage: 15 MG DAILY, H.S.
     Dates: start: 20030331
  2. REMERON [Suspect]
     Indication: GENERALISED ANXIETY DISORDER
     Dosage: 15 MG DAILY, H.S.
     Dates: start: 20030331
  3. REMERON [Suspect]
     Indication: DEPRESSION
     Dosage: 7.5 MG DAILY, H.S.
  4. REMERON [Suspect]
     Indication: GENERALISED ANXIETY DISORDER
     Dosage: 7.5 MG DAILY, H.S.
  5. KLONOPIN [Concomitant]

REACTIONS (7)
  - ARTHRALGIA [None]
  - BLOOD CREATINE PHOSPHOKINASE INCREASED [None]
  - CONDITION AGGRAVATED [None]
  - FATIGUE [None]
  - INITIAL INSOMNIA [None]
  - MYALGIA [None]
  - RESTLESS LEGS SYNDROME [None]
